FAERS Safety Report 24802290 (Version 1)
Quarter: 2025Q1

REPORT INFORMATION
  Report Type: Spontaneous
  Country: CA (occurrence: CA)
  Receive Date: 20250103
  Receipt Date: 20250103
  Transmission Date: 20250408
  Serious: Yes (Death)
  Sender: ROCHE
  Company Number: CA-ROCHE-10000171448

PATIENT

DRUGS (1)
  1. ACTEMRA [Suspect]
     Active Substance: TOCILIZUMAB
     Indication: Product used for unknown indication
     Dosage: DATE OF LAST ADMINISTRATION: 25-NOV-2024?DOSE OF LAST ADMINISTRATION: 400 MG
     Route: 042

REACTIONS (1)
  - Death [Fatal]
